FAERS Safety Report 9321558 (Version 21)
Quarter: 2015Q3

REPORT INFORMATION
  Report Type: Report from Study
  Country: BE (occurrence: BE)
  Receive Date: 20130531
  Receipt Date: 20150723
  Transmission Date: 20151125
  Serious: Yes (Life-Threatening)
  Sender: FDA-Public Use
  Company Number: BE-ROCHE-1230457

PATIENT
  Age: 71 Year
  Sex: Male

DRUGS (7)
  1. VEMURAFENIB [Suspect]
     Active Substance: VEMURAFENIB
     Indication: METASTATIC MALIGNANT MELANOMA
     Dosage: MOST RECENT DOSE WAS ON 13/MAY/2013
     Route: 048
     Dates: start: 20110902, end: 20130606
  2. VEMURAFENIB [Suspect]
     Active Substance: VEMURAFENIB
     Dosage: MOST RECENT DOSE WAS ON 29/JUL/2013
     Route: 048
     Dates: start: 20130705, end: 20130729
  3. LOSFERRON [Concomitant]
     Route: 065
     Dates: start: 20120518
  4. SYMBICORT [Concomitant]
     Active Substance: BUDESONIDE\FORMOTEROL FUMARATE DIHYDRATE
     Indication: ASTHMA
     Dosage: DAILY DOSE: 1 PUFF
     Route: 065
     Dates: start: 2000
  5. DOLZAM [Concomitant]
     Route: 065
     Dates: start: 20121123
  6. XYZALL [Concomitant]
     Active Substance: LEVOCETIRIZINE DIHYDROCHLORIDE
     Route: 065
     Dates: start: 2001
  7. PANTOMED (BELGIUM) [Concomitant]
     Route: 065
     Dates: start: 20130419

REACTIONS (1)
  - Pancreatic carcinoma [Not Recovered/Not Resolved]

NARRATIVE: CASE EVENT DATE: 20130419
